FAERS Safety Report 8131401-6 (Version None)
Quarter: 2012Q1

REPORT INFORMATION
  Report Type: 
  Country: None (occurrence: None)
  Receive Date: 20120103
  Receipt Date: 20110831
  Transmission Date: 20120608
  Serious: No
  Sender: FDA-Public Use
  Company Number: AE-2011-001236

PATIENT
  Age: 51 Year
  Sex: Female

DRUGS (6)
  1. PEGASYS [Concomitant]
  2. RIBAVIRIN [Concomitant]
  3. NEURONTIN [Concomitant]
  4. INCIVEK [Suspect]
     Dosage: 2250 MG (750 MG,1 IN 8 HR),ORAL
     Route: 048
     Dates: start: 20110829
  5. MIDODRINE HYDROCHLORIDE [Concomitant]
  6. OXYCODONE HCL [Concomitant]

REACTIONS (2)
  - DECREASED APPETITE [None]
  - NAUSEA [None]
